FAERS Safety Report 10022764 (Version 3)
Quarter: 2015Q1

REPORT INFORMATION
  Report Type: Spontaneous
  Country: PT (occurrence: PT)
  Receive Date: 20140319
  Receipt Date: 20150217
  Transmission Date: 20150720
  Serious: Yes (Disabling, Other)
  Sender: FDA-Public Use
  Company Number: PT-JNJFOC-20140310222

PATIENT
  Age: 52 Year
  Sex: Female
  Weight: 64 kg

DRUGS (5)
  1. OMEPRAZOLE. [Concomitant]
     Active Substance: OMEPRAZOLE
     Indication: CHRONIC GASTRITIS
     Route: 065
     Dates: start: 20131108, end: 20140220
  2. TRUVADA [Concomitant]
     Active Substance: EMTRICITABINE\TENOFOVIR DISOPROXIL FUMARATE
     Indication: HIV INFECTION
     Route: 048
     Dates: start: 20131108
  3. PREZISTA [Suspect]
     Active Substance: DARUNAVIR ETHANOLATE
     Indication: HIV INFECTION
     Route: 048
     Dates: start: 20131108, end: 20140220
  4. EMTRICITABINE [Concomitant]
     Active Substance: EMTRICITABINE
     Indication: HIV INFECTION
     Route: 048
     Dates: start: 20131108
  5. NORVIR [Concomitant]
     Active Substance: RITONAVIR
     Indication: HIV INFECTION
     Route: 048
     Dates: start: 20131108

REACTIONS (4)
  - Alopecia [Recovered/Resolved with Sequelae]
  - Rash [Recovered/Resolved with Sequelae]
  - Rash [Recovered/Resolved with Sequelae]
  - Pruritus [Recovered/Resolved with Sequelae]

NARRATIVE: CASE EVENT DATE: 201312
